FAERS Safety Report 6910574-4 (Version None)
Quarter: 2010Q3

REPORT INFORMATION
  Report Type: 
  Country: None (occurrence: None)
  Receive Date: 20100806
  Receipt Date: 20100729
  Transmission Date: 20110219
  Serious: Yes (Other)
  Sender: FDA-Public Use
  Company Number: BR-PFIZER INC-2010095411

PATIENT
  Age: 58 Year
  Sex: Female
  Weight: 68 kg

DRUGS (6)
  1. LIPITOR [Suspect]
     Indication: BLOOD CHOLESTEROL INCREASED
     Dosage: 20 MG, 1X/DAY
     Route: 048
     Dates: start: 20090101, end: 20100720
  2. LIPITOR [Suspect]
     Dosage: 40 MG, 1X/DAY (TWO 20MG TABLETS) AT NIGHT
     Route: 048
     Dates: start: 20100720
  3. PURAN T4 [Concomitant]
     Indication: HYPOTHYROIDISM
     Dosage: UNK
     Dates: start: 19820101
  4. PROPRANOLOL [Concomitant]
     Indication: ARRHYTHMIA
     Dosage: 40 MG, 3X/DAY
     Route: 048
     Dates: start: 19900101
  5. OMEPRAZOLE [Concomitant]
     Indication: GASTRIC HAEMORRHAGE
     Dosage: 20 MG, 3X/DAY
     Route: 048
  6. SERTRALINE [Concomitant]
     Dosage: UNK
     Dates: start: 20000501

REACTIONS (3)
  - BLOOD CHOLESTEROL INCREASED [None]
  - DIABETES MELLITUS [None]
  - INSOMNIA [None]
